FAERS Safety Report 23209928 (Version 2)
Quarter: 2023Q4

REPORT INFORMATION
  Report Type: Spontaneous
  Country: US (occurrence: US)
  Receive Date: 20231121
  Receipt Date: 20231211
  Transmission Date: 20240110
  Serious: No
  Sender: FDA-Public Use
  Company Number: US-Calliditas-2023CAL01472

PATIENT
  Age: 33 Year
  Sex: Female
  Weight: 98 kg

DRUGS (1)
  1. TARPEYO [Suspect]
     Active Substance: BUDESONIDE
     Indication: IgA nephropathy
     Dosage: 16 MG (4 MG CAPSULES) ONCE DAILY
     Route: 048
     Dates: start: 20231103, end: 20231121

REACTIONS (4)
  - Upper respiratory tract infection [Unknown]
  - Decreased appetite [Unknown]
  - Peripheral swelling [Unknown]
  - Laboratory test abnormal [Unknown]
